FAERS Safety Report 8031780-4 (Version None)
Quarter: 2012Q1

REPORT INFORMATION
  Report Type: 
  Country: None (occurrence: None)
  Receive Date: 20120109
  Receipt Date: 20120104
  Transmission Date: 20120608
  Serious: Yes (Other)
  Sender: FDA-Public Use
  Company Number: BR-SANOFI-AVENTIS-2012SA000898

PATIENT
  Age: 75 Year
  Sex: Female
  Weight: 51 kg

DRUGS (4)
  1. LANTUS [Suspect]
     Route: 065
     Dates: start: 20040101
  2. APIDRA SOLOSTAR [Suspect]
     Dosage: DOSE ACCORDING TO GLYCEMIA
     Route: 065
     Dates: start: 20060101
  3. SOLOSTAR [Suspect]
     Indication: DEVICE THERAPY
     Dates: start: 20060101
  4. VITAMIN B-12 [Suspect]
     Indication: ANAEMIA
     Route: 065

REACTIONS (7)
  - FEELING ABNORMAL [None]
  - TREMOR [None]
  - NEUROPATHY PERIPHERAL [None]
  - PARALYSIS [None]
  - VISUAL IMPAIRMENT [None]
  - DIZZINESS [None]
  - MUSCULOSKELETAL CHEST PAIN [None]
